FAERS Safety Report 5203509-6 (Version None)
Quarter: 2007Q1

REPORT INFORMATION
  Report Type: 
  Country: None (occurrence: None)
  Receive Date: 20070110
  Receipt Date: 20070103
  Transmission Date: 20070707
  Serious: Yes (Other)
  Sender: FDA-Public Use
  Company Number: 2006UW19644

PATIENT
  Age: 53 Year
  Sex: Female
  Weight: 74.8 kg

DRUGS (11)
  1. ARIMIDEX [Suspect]
     Indication: OVARIAN CANCER
     Route: 048
     Dates: start: 20060701
  2. ZYRTEC [Concomitant]
  3. SINGULAIR [Concomitant]
  4. PROVENTIL [Concomitant]
  5. XANAX [Concomitant]
  6. LUNESTA [Concomitant]
  7. GLUCOSAMINE [Concomitant]
  8. NASONEX [Concomitant]
  9. ADVAIR DISKUS 100/50 [Concomitant]
  10. NASALCROM [Concomitant]
  11. ATROVENT [Concomitant]

REACTIONS (12)
  - COUGH [None]
  - HEADACHE [None]
  - INCISION SITE COMPLICATION [None]
  - INSOMNIA [None]
  - OFF LABEL USE [None]
  - SINUS CONGESTION [None]
  - SINUSITIS [None]
  - SNEEZING [None]
  - URINARY TRACT INFECTION [None]
  - VISION BLURRED [None]
  - VULVOVAGINAL DRYNESS [None]
  - VULVOVAGINAL MYCOTIC INFECTION [None]
